FAERS Safety Report 6055711-1 (Version None)
Quarter: 2009Q1

REPORT INFORMATION
  Report Type: 
  Country: None (occurrence: None)
  Receive Date: 20090128
  Receipt Date: 20090127
  Transmission Date: 20090719
  Serious: Yes (Other)
  Sender: FDA-Public Use
  Company Number: ES-ABBOTT-08P-144-0447720-00

PATIENT

DRUGS (1)
  1. REDUCTIL 15MG [Suspect]
     Indication: WEIGHT DECREASED
     Dates: start: 20080331, end: 20080408

REACTIONS (1)
  - ABORTION SPONTANEOUS [None]
